FAERS Safety Report 9031746 (Version 1)
Quarter: 2013Q1

REPORT INFORMATION
  Report Type: Spontaneous
  Country: US (occurrence: US)
  Receive Date: 20130124
  Receipt Date: 20130124
  Transmission Date: 20140127
  Serious: No
  Sender: FDA-Public Use
  Company Number: US-MUTUAL PHARMACEUTICAL COMPANY, INC.-NSTN20120001

PATIENT
  Age: 48 Year
  Sex: Male
  Weight: 77.18 kg

DRUGS (2)
  1. NYSTATIN [Suspect]
     Indication: FUNGAL INFECTION
     Route: 048
     Dates: start: 20120430, end: 20120503
  2. NONE [Concomitant]

REACTIONS (4)
  - Gastrointestinal pain [Recovered/Resolved]
  - Anxiety [Recovered/Resolved]
  - Insomnia [Recovered/Resolved]
  - Rash pruritic [Recovered/Resolved]
